FAERS Safety Report 5014479-8 (Version None)
Quarter: 2006Q2

REPORT INFORMATION
  Report Type: 
  Country: None (occurrence: None)
  Receive Date: 20060531
  Receipt Date: 20060522
  Transmission Date: 20061013
  Serious: Yes (Other)
  Sender: FDA-Public Use
  Company Number: US-JNJFOC-20060505184

PATIENT
  Sex: Female

DRUGS (3)
  1. RISPERDAL [Suspect]
     Indication: DRUG USE FOR UNKNOWN INDICATION
     Route: 030
  2. RISPERDAL [Suspect]
     Indication: DRUG USE FOR UNKNOWN INDICATION
     Dosage: AT NIGHT
  3. RISPERDAL [Suspect]
     Dosage: AT NIGHT

REACTIONS (15)
  - ABDOMINAL PAIN UPPER [None]
  - ALOPECIA [None]
  - CONSTIPATION [None]
  - DIZZINESS [None]
  - ERUCTATION [None]
  - FALL [None]
  - HEADACHE [None]
  - HYPONATRAEMIA [None]
  - INSOMNIA [None]
  - PAIN [None]
  - PHOTOPHOBIA [None]
  - RED BLOOD CELL COUNT DECREASED [None]
  - VISION BLURRED [None]
  - WEIGHT DECREASED [None]
  - WHITE BLOOD CELL COUNT DECREASED [None]
